FAERS Safety Report 17285371 (Version 1)
Quarter: 2020Q1

REPORT INFORMATION
  Report Type: Spontaneous
  Country: US (occurrence: US)
  Receive Date: 20200117
  Receipt Date: 20200117
  Transmission Date: 20200409
  Serious: No
  Sender: FDA-Public Use
  Company Number: US-SA-2020SA010392

PATIENT
  Age: 67 Year
  Sex: Male

DRUGS (1)
  1. LOVENOX [Suspect]
     Active Substance: ENOXAPARIN SODIUM
     Dosage: 42.5 MG, Q12H
     Route: 065

REACTIONS (2)
  - Drug ineffective [Unknown]
  - Anti factor X antibody [Unknown]
